FAERS Safety Report 7331978-4 (Version None)
Quarter: 2011Q1

REPORT INFORMATION
  Report Type: 
  Country: None (occurrence: None)
  Receive Date: 20110304
  Receipt Date: 20100727
  Transmission Date: 20110831
  Serious: Yes (Hospitalization, Other)
  Sender: FDA-Public Use
  Company Number: US-PFIZER INC-2009302274

PATIENT
  Sex: Female
  Weight: 58 kg

DRUGS (8)
  1. DILANTIN [Suspect]
     Indication: CONVULSION
     Dosage: 300 MG, UNK
     Dates: end: 20090715
  2. DECADRON [Concomitant]
     Dosage: 4 MG, 3X/DAY
     Route: 048
  3. PROCHLORPERAZINE [Concomitant]
     Dosage: UNK
     Route: 048
  4. PROMETHAZINE [Concomitant]
     Dosage: UNK
  5. PROCARDIA XL [Concomitant]
     Dosage: 90 MG, UNK
     Route: 048
  6. XELODA [Concomitant]
     Dosage: UNK
     Route: 048
  7. VASOTEC [Concomitant]
     Dosage: 10 MG, UNK
     Route: 048
  8. ZOFRAN [Concomitant]
     Dosage: 4-8MG

REACTIONS (1)
  - STEVENS-JOHNSON SYNDROME [None]
